FAERS Safety Report 8644680 (Version 3)
Quarter: 2013Q1

REPORT INFORMATION
  Report Type: Spontaneous
  Country: CA (occurrence: CA)
  Receive Date: 20120702
  Receipt Date: 20130227
  Transmission Date: 20140127
  Serious: Yes (Hospitalization)
  Sender: FDA-Public Use
  Company Number: CA-ROCHE-1082733

PATIENT
  Age: 61 Year
  Sex: Female

DRUGS (3)
  1. XOLAIR [Suspect]
     Indication: ASTHMA
     Route: 058
     Dates: start: 20051104
  2. XOLAIR [Suspect]
     Route: 065
     Dates: start: 20130219
  3. OLMETEC [Concomitant]

REACTIONS (7)
  - Labyrinthitis [Unknown]
  - Malaise [Unknown]
  - Swelling face [Unknown]
  - Vomiting [Unknown]
  - Asthenia [Unknown]
  - Diarrhoea [Unknown]
  - Blood pressure fluctuation [Unknown]
